FAERS Safety Report 5708532-0 (Version None)
Quarter: 2008Q2

REPORT INFORMATION
  Report Type: 
  Country: None (occurrence: None)
  Receive Date: 20080417
  Receipt Date: 20080403
  Transmission Date: 20081010
  Serious: Yes (Death, Hospitalization)
  Sender: FDA-Public Use
  Company Number: GB-BAUSCH-2008BL001499

PATIENT
  Age: 81 Year
  Sex: Female

DRUGS (6)
  1. PREDNISOLONE [Suspect]
     Indication: DRUG USE FOR UNKNOWN INDICATION
  2. PREDNISOLONE [Suspect]
  3. AZATHIOPRINE [Suspect]
     Indication: DRUG USE FOR UNKNOWN INDICATION
  4. ATENOLOL [Concomitant]
  5. DOXAZOSIN [Concomitant]
  6. ASPIRIN [Concomitant]

REACTIONS (4)
  - HEPATITIS [None]
  - HODGKIN'S DISEASE [None]
  - HODGKIN'S DISEASE NODULAR SCLEROSIS STAGE UNSPECIFIED [None]
  - PNEUMOCYSTIS JIROVECI PNEUMONIA [None]
